FAERS Safety Report 25433034 (Version 2)
Quarter: 2025Q3

REPORT INFORMATION
  Report Type: Report from Study
  Country: IL (occurrence: IL)
  Receive Date: 20250613
  Receipt Date: 20250704
  Transmission Date: 20251021
  Serious: Yes (Hospitalization)
  Sender: TEVA
  Company Number: IL-TEVA-VS-3340431

PATIENT
  Age: 49 Year
  Sex: Male
  Weight: 89 kg

DRUGS (8)
  1. OXALIPLATIN [Suspect]
     Active Substance: OXALIPLATIN
     Indication: Colorectal cancer
     Route: 042
     Dates: start: 20250513
  2. LEUCOVORIN [Suspect]
     Active Substance: LEUCOVORIN\LEUCOVORIN CALCIUM
     Indication: Colorectal cancer
     Route: 042
     Dates: start: 20250513
  3. FLUOROURACIL [Suspect]
     Active Substance: FLUOROURACIL
     Indication: Colorectal cancer
     Route: 042
     Dates: start: 20250513
  4. BEVACIZUMAB [Suspect]
     Active Substance: BEVACIZUMAB
     Indication: Colorectal cancer
     Route: 042
     Dates: start: 20250513
  5. TELISOTUZUMAB ADIZUTECAN [Suspect]
     Active Substance: TELISOTUZUMAB ADIZUTECAN
     Indication: Colorectal cancer
     Dosage: INJECTION POWDER LYOPHILIZED FOR SOLUTION
     Route: 042
     Dates: start: 20250513
  6. NEXIUM [Concomitant]
     Active Substance: ESOMEPRAZOLE MAGNESIUM
     Indication: Oesophagitis
     Route: 065
     Dates: start: 202101
  7. FOSTER [Concomitant]
     Active Substance: BECLOMETHASONE\FORMOTEROL
     Indication: Asthma
     Route: 065
     Dates: start: 202101
  8. Procto Glyvenol [Concomitant]
     Indication: Haemorrhoids
     Dates: start: 20250401

REACTIONS (4)
  - Arteriospasm coronary [Recovered/Resolved]
  - Peripheral coldness [Unknown]
  - Chest pain [Unknown]
  - Hyperhidrosis [Unknown]

NARRATIVE: CASE EVENT DATE: 20250501
